FAERS Safety Report 4610307-0 (Version None)
Quarter: 2005Q1

REPORT INFORMATION
  Report Type: 
  Country: None (occurrence: None)
  Receive Date: 20050314
  Receipt Date: 20050228
  Transmission Date: 20050727
  Serious: Yes (Other)
  Sender: FDA-Public Use
  Company Number: SUSI-2005-00159

PATIENT
  Age: 52 Year
  Sex: Male

DRUGS (15)
  1. FOSRENOL [Suspect]
     Indication: HYPERPHOSPHATAEMIA
     Dosage: 500 MG, 3X/DAY:TID,
     Dates: start: 20050201
  2. GLUCOTROL [Concomitant]
  3. AVANDIA [Concomitant]
  4. ZEMPLAR [Concomitant]
  5. EPOGEN [Concomitant]
  6. VENOFER [Concomitant]
  7. ATORVASTATIN CALCIUM [Concomitant]
  8. METOPROLOL TARTRATE [Concomitant]
  9. MULTI-VITAMINS VITAFIT (VITAMINS NOS, FOLIC ACID, CALCIUM PANTOTHENATE [Concomitant]
  10. AMLODIPINE [Concomitant]
  11. PANTOPRAZOLE (PANTORPAZOLE) [Concomitant]
  12. ASPIRIN [Concomitant]
  13. LASIX [Concomitant]
  14. QUININE (QUININE) [Concomitant]
  15. PLAVIX [Concomitant]

REACTIONS (1)
  - HYPERGLYCAEMIA [None]
